FAERS Safety Report 9293678 (Version 3)
Quarter: 2013Q2

REPORT INFORMATION
  Report Type: Report from Study
  Country: CA (occurrence: CA)
  Receive Date: 20130516
  Receipt Date: 20130620
  Transmission Date: 20140414
  Serious: Yes (Death, Hospitalization, Other)
  Sender: FDA-Public Use
  Company Number: CA-ABBOTT-08P-028-0455154-00

PATIENT
  Age: 74 Year
  Sex: Female

DRUGS (1)
  1. HUMIRA [Suspect]
     Indication: RHEUMATOID ARTHRITIS
     Route: 058
     Dates: start: 20070827

REACTIONS (14)
  - Post procedural complication [Fatal]
  - Post procedural complication [Fatal]
  - Wound dehiscence [Unknown]
  - Wound secretion [Unknown]
  - Abdominal pain [Unknown]
  - Gastric ulcer perforation [Unknown]
  - Pneumonia [Unknown]
  - Pneumonia [Unknown]
  - Malnutrition [Unknown]
  - Mobility decreased [Unknown]
  - Gastric perforation [Unknown]
  - Hypotension [Unknown]
  - Tachycardia [Unknown]
  - Rales [Unknown]
